FAERS Safety Report 5377510-6 (Version None)
Quarter: 2007Q3

REPORT INFORMATION
  Report Type: 
  Country: None (occurrence: None)
  Receive Date: 20070703
  Receipt Date: 20070627
  Transmission Date: 20080115
  Serious: Yes (Other)
  Sender: FDA-Public Use
  Company Number: GB-ABBOTT-07P-167-0373017-00

PATIENT
  Age: 62 Year
  Sex: Female
  Weight: 73 kg

DRUGS (5)
  1. HUMIRA [Suspect]
     Indication: RHEUMATOID ARTHRITIS
     Dates: start: 20060629, end: 20070424
  2. SULFASALAZINE [Concomitant]
     Indication: RHEUMATOID ARTHRITIS
     Dates: start: 20040101
  3. RISEDRONATE SODIUM [Concomitant]
     Indication: OSTEOPENIA
     Dates: start: 20040101
  4. NAPROXEN [Concomitant]
     Indication: ANALGESIA
     Dates: start: 20000101
  5. NIZATIDINE [Concomitant]
     Indication: PROPHYLAXIS AGAINST GASTROINTESTINAL ULCER
     Dates: start: 20000101

REACTIONS (7)
  - BLOOD CHOLESTEROL INCREASED [None]
  - HYPERSENSITIVITY [None]
  - HYPERTENSION [None]
  - INSOMNIA [None]
  - MALAISE [None]
  - PSYCHOMOTOR HYPERACTIVITY [None]
  - STRESS [None]
